FAERS Safety Report 15571222 (Version 1)
Quarter: 2018Q4

REPORT INFORMATION
  Report Type: Spontaneous
  Country: CN (occurrence: CN)
  Receive Date: 20181031
  Receipt Date: 20181031
  Transmission Date: 20190205
  Serious: Yes (Hospitalization)
  Sender: FDA-Public Use
  Company Number: CN-ACTELION-A-CH2018-180686

PATIENT
  Age: 28 Year
  Sex: Female

DRUGS (7)
  1. SODIUM FERULATE [Concomitant]
     Dosage: 100 MG, TID
  2. SPIRONOLACTONE. [Concomitant]
     Active Substance: SPIRONOLACTONE
     Dosage: 20 MG, QD
     Route: 048
  3. TRACLEER [Suspect]
     Active Substance: BOSENTAN
     Indication: PULMONARY ARTERIAL HYPERTENSION
     Dosage: 62.5 MG, BID
     Route: 048
     Dates: start: 2016
  4. FUROSEMIDE. [Concomitant]
     Active Substance: FUROSEMIDE
     Indication: PRODUCT USED FOR UNKNOWN INDICATION
     Dosage: 20 MG, QD
     Route: 048
  5. CYCLOPHOSPHAMIDE. [Concomitant]
     Active Substance: CYCLOPHOSPHAMIDE
     Route: 042
  6. WARFARIN [Concomitant]
     Active Substance: WARFARIN
     Dosage: 3 MG, QD
  7. AZATHIOPRINE. [Concomitant]
     Active Substance: AZATHIOPRINE
     Dosage: 2 DF, UNK

REACTIONS (4)
  - Pulmonary arterial pressure abnormal [Not Recovered/Not Resolved]
  - Drug ineffective [Unknown]
  - Arterial catheterisation [Unknown]
  - Nausea [Unknown]
